FAERS Safety Report 6339938-7 (Version None)
Quarter: 2009Q3

REPORT INFORMATION
  Report Type: 
  Country: None (occurrence: None)
  Receive Date: 20090903
  Receipt Date: 20090824
  Transmission Date: 20100115
  Serious: Yes (Hospitalization, Other)
  Sender: FDA-Public Use
  Company Number: TN-MYLANLABS-2009S1014994

PATIENT
  Age: 40 Year
  Sex: Male

DRUGS (4)
  1. ANTITHYMOCYTE GLOBULIN [Suspect]
     Indication: IMMUNOSUPPRESSION
  2. MYCOPHENOLATE MOFETIL [Suspect]
     Indication: IMMUNOSUPPRESSION
  3. TACROLIMUS [Suspect]
     Indication: IMMUNOSUPPRESSION
  4. PREDNISONE [Suspect]
     Indication: IMMUNOSUPPRESSION

REACTIONS (3)
  - KAPOSI'S SARCOMA [None]
  - LYMPHOPENIA [None]
  - NOCARDIOSIS [None]
